FAERS Safety Report 19745716 (Version 1)
Quarter: 2021Q3

REPORT INFORMATION
  Report Type: Other
  Country: US (occurrence: US)
  Receive Date: 20210825
  Receipt Date: 20210825
  Transmission Date: 20211014
  Serious: Yes (Other)
  Sender: FDA-Public Use
  Company Number: US-ROCHE-2893045

PATIENT
  Sex: Male

DRUGS (3)
  1. ZELBORAF [Suspect]
     Active Substance: VEMURAFENIB
     Indication: NEOPLASM MALIGNANT
     Route: 048
  2. ZELBORAF [Suspect]
     Active Substance: VEMURAFENIB
     Indication: PLASMA CELL MYELOMA
  3. ZELBORAF [Suspect]
     Active Substance: VEMURAFENIB
     Indication: PLASMA CELL MYELOMA

REACTIONS (2)
  - Off label use [Unknown]
  - Cerebrovascular accident [Unknown]
